FAERS Safety Report 4380990-6 (Version None)
Quarter: 2004Q2

REPORT INFORMATION
  Report Type: 
  Country: None (occurrence: None)
  Receive Date: 20040614
  Receipt Date: 20040609
  Transmission Date: 20050107
  Serious: Yes (Other)
  Sender: FDA-Public Use
  Company Number: FRWYE815009JUN04

PATIENT
  Age: 53 Year
  Sex: Female

DRUGS (3)
  1. EFFEXOR [Suspect]
     Dosage: 200 MG DAILY
     Route: 048
     Dates: start: 20030901, end: 20040501
  2. UNSPECIFIED BETA BLOCKER (UNSPECIFIED BETA BLOCKER) [Concomitant]
  3. UNSPECIFIED DIURETIC (UNSPECIFIED DIURETIC) [Concomitant]

REACTIONS (1)
  - CYTOLYTIC HEPATITIS [None]
